FAERS Safety Report 21543923 (Version 1)
Quarter: 2022Q4

REPORT INFORMATION
  Report Type: Spontaneous
  Country: BR (occurrence: BR)
  Receive Date: 20221102
  Receipt Date: 20221102
  Transmission Date: 20230113
  Serious: Yes (Other)
  Sender: FDA-Public Use
  Company Number: BR-NAPPMUNDI-GBR-2022-0102437

PATIENT
  Age: 66 Year
  Sex: Female
  Weight: 89 kg

DRUGS (7)
  1. BUPRENORPHINE [Suspect]
     Active Substance: BUPRENORPHINE
     Indication: Pain
     Dosage: 5 MILLIGRAM
     Route: 062
  2. BUPRENORPHINE [Suspect]
     Active Substance: BUPRENORPHINE
     Indication: Prosthesis user
     Dosage: 5 MILLIGRAM, 1/WEEK
     Route: 062
     Dates: start: 20220918, end: 20221016
  3. CLONAZEPAM [Concomitant]
     Active Substance: CLONAZEPAM
     Indication: Product used for unknown indication
     Dosage: UNK
  4. CLONAZEPAM [Concomitant]
     Active Substance: CLONAZEPAM
     Indication: Depression
     Dosage: 1 DOSAGE FORM, DAILY
  5. LEVOTHYROXINE [Concomitant]
     Active Substance: LEVOTHYROXINE
     Indication: Thyroid cancer
     Dosage: 100 MILLIGRAM
  6. ACETAMINOPHEN [Concomitant]
     Active Substance: ACETAMINOPHEN
     Indication: Pain
     Dosage: UNK
  7. ACETAMINOPHEN [Concomitant]
     Active Substance: ACETAMINOPHEN
     Indication: Pyrexia
     Dosage: UNK

REACTIONS (13)
  - Deafness [Not Recovered/Not Resolved]
  - Haemorrhage [Not Recovered/Not Resolved]
  - Ear discomfort [Unknown]
  - Oropharyngeal plaque [Not Recovered/Not Resolved]
  - Burning sensation [Unknown]
  - Wound [Unknown]
  - Cellulite [Unknown]
  - Pruritus [Not Recovered/Not Resolved]
  - Off label use [Unknown]
  - Contusion [Not Recovered/Not Resolved]
  - Blister [Not Recovered/Not Resolved]
  - Varicose vein [Not Recovered/Not Resolved]
  - Dry skin [Not Recovered/Not Resolved]

NARRATIVE: CASE EVENT DATE: 20220901
